FAERS Safety Report 18778190 (Version 1)
Quarter: 2021Q1

REPORT INFORMATION
  Report Type: Spontaneous
  Country: CA (occurrence: CA)
  Receive Date: 20210123
  Receipt Date: 20210123
  Transmission Date: 20210419
  Serious: Yes (Life-Threatening, Other)
  Sender: FDA-Public Use
  Company Number: CA-ACCORD-214870

PATIENT
  Age: 9 Year
  Sex: Male

DRUGS (23)
  1. DIPHENHYDRAMINE. [Concomitant]
     Active Substance: DIPHENHYDRAMINE
  2. KETAMINE [Concomitant]
     Active Substance: KETAMINE
  3. OLANZAPINE. [Concomitant]
     Active Substance: OLANZAPINE
  4. DEXAMETHASONE. [Concomitant]
     Active Substance: DEXAMETHASONE
     Route: 065
  5. NIFEDIPINE. [Concomitant]
     Active Substance: NIFEDIPINE
  6. FLUDARABINE/FLUDARABINE PHOSPHATE [Suspect]
     Active Substance: FLUDARABINE PHOSPHATE
     Indication: CHEMOTHERAPY
     Route: 042
  7. CALCIUM CARBONATE/COLECALCIFEROL [Concomitant]
     Active Substance: CALCIUM CARBONATE\CHOLECALCIFEROL
  8. HYDROXYZINE [Concomitant]
     Active Substance: HYDROXYZINE HYDROCHLORIDE
  9. TACROLIMUS. [Suspect]
     Active Substance: TACROLIMUS
     Route: 042
  10. FLUCONAZOLE. [Concomitant]
     Active Substance: FLUCONAZOLE
  11. FUROSEMIDE. [Concomitant]
     Active Substance: FUROSEMIDE
  12. ONDANSETRON [Concomitant]
     Active Substance: ONDANSETRON
  13. URSODEOXYCHOLATE SODIUM/URSODEOXYCHOLIC ACID [Concomitant]
     Active Substance: URSODIOL
  14. AMLODIPINE [Concomitant]
     Active Substance: AMLODIPINE BESYLATE
  15. SULFAMETHOXAZOLE/TRIMETHOPRIM [Concomitant]
     Active Substance: SULFAMETHOXAZOLE\TRIMETHOPRIM
  16. THIOTEPA. [Suspect]
     Active Substance: THIOTEPA
     Indication: CHEMOTHERAPY
     Route: 042
  17. FAMOTIDINE. [Concomitant]
     Active Substance: FAMOTIDINE
  18. GABAPENTIN. [Concomitant]
     Active Substance: GABAPENTIN
  19. HYDROMORPHONE/HYDROMORPHONE HYDROCHLORIDE [Concomitant]
     Active Substance: HYDROMORPHONE
  20. LEVETIRACETAM. [Concomitant]
     Active Substance: LEVETIRACETAM
  21. MELPHALAN. [Suspect]
     Active Substance: MELPHALAN
     Indication: CHEMOTHERAPY
     Route: 042
  22. METHYLPREDNISOLONE. [Concomitant]
     Active Substance: METHYLPREDNISOLONE
  23. NALOXONE [Concomitant]
     Active Substance: NALOXONE

REACTIONS (3)
  - Aplasia [Recovered/Resolved]
  - Chills [Recovered/Resolved]
  - Febrile neutropenia [Recovered/Resolved]
